FAERS Safety Report 9773911 (Version 1)
Quarter: 2013Q4

REPORT INFORMATION
  Report Type: Spontaneous
  Country: US (occurrence: US)
  Receive Date: 20131220
  Receipt Date: 20131220
  Transmission Date: 20140711
  Serious: No
  Sender: FDA-Public Use
  Company Number: US-009507513-1312USA007372

PATIENT
  Age: 28 Year
  Sex: Female

DRUGS (3)
  1. VICTRELIS [Suspect]
     Indication: HEPATITIS C
     Dosage: 800 MG, TID
     Route: 048
     Dates: start: 201311
  2. REBETOL [Suspect]
     Dosage: UNK
     Route: 048
     Dates: start: 201310
  3. PEGASYS [Suspect]
     Dosage: UNK
     Dates: start: 201310

REACTIONS (8)
  - Haematocrit decreased [Unknown]
  - White blood cell count decreased [Unknown]
  - Tachycardia [Not Recovered/Not Resolved]
  - Dizziness [Not Recovered/Not Resolved]
  - Dyspnoea [Not Recovered/Not Resolved]
  - Nausea [Not Recovered/Not Resolved]
  - Dysgeusia [Unknown]
  - Weight decreased [Unknown]
